FAERS Safety Report 8266399-3 (Version None)
Quarter: 2012Q2

REPORT INFORMATION
  Report Type: 
  Country: None (occurrence: None)
  Receive Date: 20120406
  Receipt Date: 20120403
  Transmission Date: 20120825
  Serious: Yes (Other)
  Sender: FDA-Public Use
  Company Number: US-PFIZER INC-2012082691

PATIENT
  Sex: Male
  Weight: 90.703 kg

DRUGS (2)
  1. CHANTIX [Suspect]
     Dosage: UNK
     Dates: end: 20120330
  2. CHANTIX [Suspect]
     Indication: SMOKING CESSATION THERAPY
     Dosage: 0.5 MG, 2X/DAY
     Dates: start: 20110101

REACTIONS (4)
  - RASH [None]
  - OROPHARYNGEAL BLISTERING [None]
  - RASH MACULAR [None]
  - BLISTER [None]
